FAERS Safety Report 10265667 (Version 1)
Quarter: 2014Q2

REPORT INFORMATION
  Report Type: Spontaneous
  Country: US (occurrence: None)
  Receive Date: 20140625
  Receipt Date: 20140625
  Transmission Date: 20141212
  Serious: No
  Sender: FDA-Public Use
  Company Number: None

PATIENT
  Age: 68 Year
  Sex: Male
  Weight: 70.31 kg

DRUGS (11)
  1. LEVOFLOXACIN [Suspect]
     Indication: PNEUMONIA BACTERIAL
     Route: 048
     Dates: start: 20140608, end: 20140609
  2. METFORMIN [Concomitant]
  3. LISINOPRIL [Concomitant]
  4. METROPOLOL [Concomitant]
  5. PRAVASTATIN [Concomitant]
  6. SPIRONOLACTONE [Concomitant]
  7. FUROSIMIDE [Concomitant]
  8. WARFARIN [Concomitant]
  9. ISOSORBIDE MONO [Concomitant]
  10. ASPIRIN [Concomitant]
  11. PACEMAKER-DEFIBRILLATOR [Concomitant]

REACTIONS (1)
  - Tendon pain [None]
